FAERS Safety Report 4573052-6 (Version None)
Quarter: 2005Q1

REPORT INFORMATION
  Report Type: 
  Country: None (occurrence: None)
  Receive Date: 20050204
  Receipt Date: 20050117
  Transmission Date: 20050727
  Serious: Yes (Hospitalization)
  Sender: FDA-Public Use
  Company Number: SHI_00010_2005

PATIENT
  Sex: Male

DRUGS (3)
  1. KEIMAX [Suspect]
     Indication: BRONCHITIS
     Dosage: DF QDAY PO
     Route: 048
     Dates: start: 20030318, end: 20030322
  2. DICLOFENAC [Concomitant]
  3. MAXALT [Concomitant]

REACTIONS (3)
  - CSF CELL COUNT INCREASED [None]
  - DEPRESSED LEVEL OF CONSCIOUSNESS [None]
  - MENINGITIS VIRAL [None]
